FAERS Safety Report 23096974 (Version 3)
Quarter: 2023Q4

REPORT INFORMATION
  Report Type: Spontaneous
  Country: US (occurrence: US)
  Receive Date: 20231023
  Receipt Date: 20231024
  Transmission Date: 20240110
  Serious: No
  Sender: FDA-Public Use
  Company Number: US-PFIZER INC-PV202300173398

PATIENT
  Sex: Female

DRUGS (2)
  1. ELIQUIS [Interacting]
     Active Substance: APIXABAN
     Dosage: UNK
  2. TIKOSYN [Interacting]
     Active Substance: DOFETILIDE
     Indication: Atrial fibrillation
     Dosage: 500 MG

REACTIONS (1)
  - Drug interaction [Unknown]
